FAERS Safety Report 4301564-9 (Version None)
Quarter: 2004Q1

REPORT INFORMATION
  Report Type: 
  Country: None (occurrence: None)
  Receive Date: 20040219
  Receipt Date: 20040210
  Transmission Date: 20041129
  Serious: Yes (Other)
  Sender: FDA-Public Use
  Company Number: US-JNJFOC-20040202448

PATIENT
  Sex: Male

DRUGS (1)
  1. DURAGESIC [Suspect]
     Dosage: 1 IN 72 HOUR,  TRANSDERMAL
     Route: 062

REACTIONS (1)
  - TETANY [None]
